FAERS Safety Report 17202712 (Version 1)
Quarter: 2019Q4

REPORT INFORMATION
  Report Type: Spontaneous
  Country: US (occurrence: US)
  Receive Date: 20191204
  Receipt Date: 20191204
  Transmission Date: 20200122
  Serious: Yes (Hospitalization)
  Sender: FDA-Public Use
  Company Number: None

PATIENT
  Age: 56 Year
  Sex: Female

DRUGS (6)
  1. METFORMIN [Concomitant]
     Active Substance: METFORMIN HYDROCHLORIDE
  2. XELJANZ [Suspect]
     Active Substance: TOFACITINIB CITRATE
     Route: 048
     Dates: start: 20190103
  3. RUSUVASTATIN [Concomitant]
     Active Substance: ROSUVASTATIN
  4. PHENTERMINE CAP [Concomitant]
  5. FAMCICLOVIR. [Concomitant]
     Active Substance: FAMCICLOVIR
  6. TRAMADOL HCL [Concomitant]
     Active Substance: TRAMADOL HYDROCHLORIDE

REACTIONS (3)
  - Bone pain [None]
  - Herpes zoster [None]
  - Condition aggravated [None]

NARRATIVE: CASE EVENT DATE: 20191203
